FAERS Safety Report 4343557-1 (Version None)
Quarter: 2004Q2

REPORT INFORMATION
  Report Type: 
  Country: None (occurrence: None)
  Receive Date: 20040419
  Receipt Date: 20040412
  Transmission Date: 20050107
  Serious: Yes (Hospitalization)
  Sender: FDA-Public Use
  Company Number: US-JNJFOC-20040402559

PATIENT
  Age: 48 Year
  Sex: Female

DRUGS (11)
  1. DURAGESIC [Suspect]
     Indication: PAIN
     Dosage: SEE IMAGE
     Dates: start: 20010101
  2. DURAGESIC [Suspect]
     Indication: PAIN
     Dosage: SEE IMAGE
     Dates: start: 20030101
  3. NEURONTIN [Concomitant]
  4. DILAUDED (HYDROMORPHONE HYDROCHLORIDE) [Concomitant]
  5. LORAZEPAM [Concomitant]
  6. ZOLOFT [Concomitant]
  7. COUMADIN [Concomitant]
  8. FOSAMAX [Concomitant]
  9. DITROPAN [Concomitant]
  10. AMBIEN [Concomitant]
  11. VIVELLE (ESTRADIOL) TRANSDERMAL SYSTEM [Concomitant]

REACTIONS (1)
  - PORPHYRIA [None]
